FAERS Safety Report 24011593 (Version 1)
Quarter: 2024Q2

REPORT INFORMATION
  Report Type: Report from Study
  Country: US (occurrence: US)
  Receive Date: 20240625
  Receipt Date: 20240625
  Transmission Date: 20240716
  Serious: No
  Sender: FDA-Public Use
  Company Number: US-AstraZeneca-CH-00649187A

PATIENT
  Age: 72 Year
  Sex: Male

DRUGS (1)
  1. ULTOMIRIS [Suspect]
     Active Substance: RAVULIZUMAB-CWVZ
     Indication: Myasthenia gravis
     Dosage: UNK
     Route: 041
     Dates: start: 20231214

REACTIONS (3)
  - Gastrooesophageal reflux disease [Unknown]
  - Device physical property issue [Unknown]
  - Oral pain [Unknown]

NARRATIVE: CASE EVENT DATE: 20240601
